FAERS Safety Report 5113426-8 (Version None)
Quarter: 2006Q3

REPORT INFORMATION
  Report Type: 
  Country: None (occurrence: None)
  Receive Date: 20060921
  Receipt Date: 20060921
  Transmission Date: 20061208
  Serious: Yes (Hospitalization)
  Sender: FDA-Public Use
  Company Number: None

PATIENT
  Age: 18 Year
  Sex: Male
  Weight: 69 kg

DRUGS (8)
  1. REMODULIN [Suspect]
     Indication: PULMONARY HYPERTENSION
     Dosage: 118NG/KG/MIN  AT 101ML/HR  CONTINOUS   IV DRIP
     Route: 041
     Dates: start: 20050502, end: 20060920
  2. SILDENAFIL [Concomitant]
  3. COUMADIN [Concomitant]
  4. FLONASE [Concomitant]
  5. FLOVENT [Concomitant]
  6. SINGULAIR [Concomitant]
  7. XOPENEX [Concomitant]
  8. OXYGEN [Concomitant]

REACTIONS (3)
  - BACTERAEMIA [None]
  - CITROBACTER INFECTION [None]
  - POST PROCEDURAL COMPLICATION [None]
